FAERS Safety Report 12531096 (Version 3)
Quarter: 2016Q3

REPORT INFORMATION
  Report Type: Spontaneous
  Country: ES (occurrence: ES)
  Receive Date: 20160706
  Receipt Date: 20160817
  Transmission Date: 20161109
  Serious: Yes (Disabling, Other)
  Sender: FDA-Public Use
  Company Number: PHHY2016ES090378

PATIENT
  Age: 60 Year
  Sex: Female

DRUGS (2)
  1. RILUZOLE. [Interacting]
     Active Substance: RILUZOLE
     Indication: AMYOTROPHIC LATERAL SCLEROSIS
     Dosage: 50 MG, QD
     Route: 065
     Dates: start: 201606, end: 20160617
  2. EVEROLIMUS [Suspect]
     Active Substance: EVEROLIMUS
     Indication: RENAL TRANSPLANT
     Dosage: UNK
     Route: 048
     Dates: start: 201109

REACTIONS (8)
  - Intervertebral disc protrusion [Unknown]
  - Urinary tract obstruction [Unknown]
  - Spinal column stenosis [Unknown]
  - Amyotrophic lateral sclerosis [Unknown]
  - Drug interaction [Unknown]
  - Urinary tract infection [Unknown]
  - Proteinuria [Unknown]
  - Immunosuppressant drug level increased [Unknown]

NARRATIVE: CASE EVENT DATE: 201304
